FAERS Safety Report 6543792-8 (Version None)
Quarter: 2010Q1

REPORT INFORMATION
  Report Type: 
  Country: None (occurrence: None)
  Receive Date: 20100119
  Receipt Date: 20100119
  Transmission Date: 20100710
  Serious: Yes (Hospitalization, Other)
  Sender: FDA-Public Use
  Company Number: None

PATIENT
  Sex: Male
  Weight: 74.8435 kg

DRUGS (1)
  1. TUSSIONEX PENNKINETIC [Suspect]
     Indication: COUGH
     Dosage: 1 TEASPOON 12 HOURS PO
     Route: 048
     Dates: start: 20100114, end: 20100114

REACTIONS (5)
  - BLINDNESS [None]
  - HYPERHIDROSIS [None]
  - HYPOAESTHESIA FACIAL [None]
  - PRURITUS [None]
  - RASH [None]
